FAERS Safety Report 15854442 (Version 2)
Quarter: 2019Q1

REPORT INFORMATION
  Report Type: Spontaneous
  Country: BE (occurrence: BE)
  Receive Date: 20190122
  Receipt Date: 20190215
  Transmission Date: 20190417
  Serious: Yes (Hospitalization, Other)
  Sender: FDA-Public Use
  Company Number: IND-BE-009507513-1812BEL003496

PATIENT
  Age: 64 Year
  Sex: Female

DRUGS (4)
  1. ISO-BETADINE [Concomitant]
     Active Substance: POVIDONE-IODINE
     Dosage: UNK
     Dates: start: 2018, end: 2018
  2. BRIDION [Suspect]
     Active Substance: SUGAMMADEX
     Indication: NEUROMUSCULAR BLOCKADE REVERSAL
     Dosage: UNK
     Dates: start: 2018, end: 2018
  3. ESMERON [Suspect]
     Active Substance: ROCURONIUM BROMIDE
     Dosage: UNK
     Dates: start: 2018, end: 2018
  4. CHLORHEXIDINE GLUTAMATE [Concomitant]
     Dosage: UNK
     Dates: start: 2018, end: 2018

REACTIONS (4)
  - Anaphylactic reaction [Recovering/Resolving]
  - Hypersensitivity [Recovering/Resolving]
  - Cardiac arrest [Recovering/Resolving]
  - Adverse event [Unknown]

NARRATIVE: CASE EVENT DATE: 2018
